FAERS Safety Report 13176468 (Version 1)
Quarter: 2017Q1

REPORT INFORMATION
  Report Type: Report from Study
  Country: US (occurrence: US)
  Receive Date: 20170201
  Receipt Date: 20170201
  Transmission Date: 20170428
  Serious: Yes (Other)
  Sender: FDA-Public Use
  Company Number: US-MYLANLABS-2017M1005875

PATIENT

DRUGS (2)
  1. DOVITINIB [Suspect]
     Active Substance: DOVITINIB LACTATE
     Indication: NON-SMALL CELL LUNG CANCER METASTATIC
     Dosage: 300 MG/DAY 5 DAYS A WEEK FOLLOWED BY TWO DAYS OFF
     Route: 048
  2. ERLOTINIB [Suspect]
     Active Substance: ERLOTINIB
     Indication: NON-SMALL CELL LUNG CANCER METASTATIC
     Dosage: 150MG DAILY
     Route: 048

REACTIONS (1)
  - Syncope [Unknown]
